FAERS Safety Report 8466486-0 (Version None)
Quarter: 2012Q2

REPORT INFORMATION
  Report Type: 
  Country: None (occurrence: None)
  Receive Date: 20120626
  Receipt Date: 20120613
  Transmission Date: 20120825
  Serious: No
  Sender: FDA-Public Use
  Company Number: US-ASTRAZENECA-2012SE39827

PATIENT
  Age: 69 Year
  Sex: Female

DRUGS (4)
  1. PRILOSEC OTC [Suspect]
     Route: 048
  2. PRILOSEC [Suspect]
     Route: 048
  3. NEXIUM [Suspect]
     Route: 048
  4. LANSOPRAZOLE [Suspect]
     Route: 065

REACTIONS (8)
  - FOOT FRACTURE [None]
  - PARKINSON'S DISEASE [None]
  - OESOPHAGEAL PAIN [None]
  - DRUG INEFFECTIVE [None]
  - FIBROMYALGIA [None]
  - MALAISE [None]
  - GASTROOESOPHAGEAL REFLUX DISEASE [None]
  - INTENTIONAL DRUG MISUSE [None]
